FAERS Safety Report 6965234-0 (Version None)
Quarter: 2010Q3

REPORT INFORMATION
  Report Type: 
  Country: None (occurrence: None)
  Receive Date: 20100903
  Receipt Date: 20100831
  Transmission Date: 20110219
  Serious: Yes (Death, Hospitalization)
  Sender: FDA-Public Use
  Company Number: PHHY2010CA57408

PATIENT
  Sex: Female

DRUGS (1)
  1. SANDOSTATIN LAR [Suspect]
     Indication: INTESTINAL OBSTRUCTION
     Dosage: 20 MG EVERY 04 WEEKS
     Route: 030
     Dates: start: 20100503

REACTIONS (1)
  - DEATH [None]
